FAERS Safety Report 6174506-1 (Version None)
Quarter: 2009Q2

REPORT INFORMATION
  Report Type: 
  Country: None (occurrence: None)
  Receive Date: 20090430
  Receipt Date: 20080701
  Transmission Date: 20091009
  Serious: No
  Sender: FDA-Public Use
  Company Number: US-ASTRAZENECA-2008UW13273

PATIENT
  Age: 82 Year
  Sex: Female

DRUGS (5)
  1. NEXIUM [Suspect]
     Indication: GASTROOESOPHAGEAL REFLUX DISEASE
     Route: 048
     Dates: start: 20080501
  2. ZETIA [Concomitant]
  3. LIPITOR [Concomitant]
  4. ZOLOFT [Concomitant]
  5. ALPRAZOLAM [Concomitant]

REACTIONS (2)
  - GLOSSODYNIA [None]
  - STOMATITIS [None]
